FAERS Safety Report 7254811-8 (Version None)
Quarter: 2011Q1

REPORT INFORMATION
  Report Type: 
  Country: None (occurrence: None)
  Receive Date: 20110129
  Receipt Date: 20100223
  Transmission Date: 20110831
  Serious: No
  Sender: FDA-Public Use
  Company Number: US-ABBOTT-10P-163-0629285-00

PATIENT
  Sex: Male

DRUGS (1)
  1. HUMIRA [Suspect]
     Indication: PSORIASIS
     Dates: start: 20090701, end: 20100216

REACTIONS (8)
  - DECREASED APPETITE [None]
  - PSORIASIS [None]
  - PALPITATIONS [None]
  - HEART RATE INCREASED [None]
  - FEELING OF BODY TEMPERATURE CHANGE [None]
  - DYSPNOEA [None]
  - FATIGUE [None]
  - DIARRHOEA [None]
